FAERS Safety Report 11314436 (Version 1)
Quarter: 2015Q3

REPORT INFORMATION
  Report Type: Spontaneous
  Country: US (occurrence: US)
  Receive Date: 20150727
  Receipt Date: 20150727
  Transmission Date: 20151125
  Serious: No
  Sender: FDA-Public Use
  Company Number: US-GLAXOSMITHKLINE-US2015105958

PATIENT
  Age: 75 Year
  Sex: Female
  Weight: 42.18 kg

DRUGS (7)
  1. AMITRIPTYLINE [Concomitant]
     Active Substance: AMITRIPTYLINE
  2. PREDNISONE. [Concomitant]
     Active Substance: PREDNISONE
  3. BENADRYL (USA) [Concomitant]
  4. KLONOPIN [Concomitant]
     Active Substance: CLONAZEPAM
  5. TRAMADOL. [Concomitant]
     Active Substance: TRAMADOL
  6. PROAIR INHALER [Concomitant]
  7. BREO ELLIPTA [Suspect]
     Active Substance: FLUTICASONE FUROATE\VILANTEROL TRIFENATATE
     Indication: CHRONIC OBSTRUCTIVE PULMONARY DISEASE
     Dosage: 1 PUFF(S), QD
     Route: 055
     Dates: start: 20150715

REACTIONS (3)
  - Adverse drug reaction [Unknown]
  - Eye swelling [Not Recovered/Not Resolved]
  - Respiratory tract irritation [Recovered/Resolved]

NARRATIVE: CASE EVENT DATE: 20150723
